FAERS Safety Report 9908760 (Version 1)
Quarter: 2014Q1

REPORT INFORMATION
  Report Type: Spontaneous
  Country: US (occurrence: US)
  Receive Date: 20140219
  Receipt Date: 20140219
  Transmission Date: 20141002
  Serious: No
  Sender: FDA-Public Use
  Company Number: US-PFIZER INC-2014044789

PATIENT
  Age: 66 Year
  Sex: Female
  Weight: 63.5 kg

DRUGS (3)
  1. ADVIL COLD AND SINUS [Suspect]
     Indication: COUGH
     Dosage: ONE TABLET, EVERY 4 TO 5 HOURS
     Route: 048
  2. ADVIL COLD AND SINUS [Suspect]
     Indication: RHINORRHOEA
  3. ADVIL COLD AND SINUS [Suspect]
     Indication: NASAL CONGESTION

REACTIONS (2)
  - Condition aggravated [Unknown]
  - Insomnia [Unknown]
